FAERS Safety Report 14511218 (Version 3)
Quarter: 2018Q2

REPORT INFORMATION
  Report Type: Spontaneous
  Country: US (occurrence: US)
  Receive Date: 20180209
  Receipt Date: 20180629
  Transmission Date: 20180711
  Serious: Yes (Hospitalization, Other)
  Sender: FDA-Public Use
  Company Number: US-PFIZER INC-2018056978

PATIENT
  Age: 66 Year
  Sex: Female
  Weight: 58.6 kg

DRUGS (4)
  1. LYRICA [Suspect]
     Active Substance: PREGABALIN
     Indication: BACK DISORDER
     Dosage: 100 MG, UNK (4-5 TIMES A DAY)
     Route: 048
  2. LYRICA [Suspect]
     Active Substance: PREGABALIN
     Indication: NEURALGIA
     Dosage: 100 MG, 4X/DAY
     Route: 048
  3. DILAUDID [Concomitant]
     Active Substance: HYDROMORPHONE HYDROCHLORIDE
  4. FLECTOR [Suspect]
     Active Substance: DICLOFENAC EPOLAMINE
     Indication: BACK DISORDER
     Dosage: UNK (1.3% PATCH APPLIED TO LOWER BACK EVERY 12 HOURS)
     Dates: start: 2017

REACTIONS (4)
  - Fall [Recovering/Resolving]
  - Back pain [Not Recovered/Not Resolved]
  - Spinal fracture [Unknown]
  - Myocardial infarction [Unknown]

NARRATIVE: CASE EVENT DATE: 201711
